FAERS Safety Report 21257515 (Version 1)
Quarter: 2022Q3

REPORT INFORMATION
  Report Type: Spontaneous
  Country: FR (occurrence: FR)
  Receive Date: 20220826
  Receipt Date: 20220826
  Transmission Date: 20221027
  Serious: Yes (Death)
  Sender: FDA-Public Use
  Company Number: None

PATIENT
  Age: 54 Year
  Sex: Male
  Weight: 55 kg

DRUGS (8)
  1. ETOPOSIDE [Suspect]
     Active Substance: ETOPOSIDE
     Indication: Testis cancer
     Dosage: UNIT DOSE: 1 DF, FREQUENCY TIME-1 CYCLICAL, DURATION-1 MONTH
     Dates: start: 202205, end: 20220626
  2. CISPLATIN [Suspect]
     Active Substance: CISPLATIN
     Indication: Testis cancer
     Dosage: UNIT DOSE: 1 DF, FREQUENCY TIME-1 CYCLICAL, DURATION-1 MONTH
     Dates: start: 202205, end: 20220626
  3. BLEOMYCIN SULFATE [Suspect]
     Active Substance: BLEOMYCIN SULFATE
     Indication: Testis cancer
     Dosage: UNIT DOSE: 1 DF, FREQUENCY TIME-1 CYCLICAL, DURATION-1 MONTH
     Dates: start: 202205, end: 20220626
  4. CYAMEMAZINE [Concomitant]
     Active Substance: CYAMEMAZINE
     Indication: Product used for unknown indication
     Dosage: FORM STRENGTH: 25 MG, UNIT DOSE: 25 MG, FREQUENCY TIME-1 DAY, THERAPY START DATE: ASKU
  5. ZOPICLONE [Concomitant]
     Active Substance: ZOPICLONE
     Indication: Product used for unknown indication
     Dosage: UNIT DOSE: 7.5 MG, FREQUENCY TIME-1 DAY, THERAPY START DATE: ASKU
  6. OXAZEPAM [Concomitant]
     Active Substance: OXAZEPAM
     Indication: Product used for unknown indication
     Dosage: FORM STRENGTH: 10 MG, UNIT DOSE: 10 MG, FREQUENCY TIME-1 DAY, THERAPY START DATE: ASKU
  7. SULPIRIDE [Concomitant]
     Active Substance: SULPIRIDE
     Indication: Product used for unknown indication
     Dosage: UNIT DOSE: 200 MG, FREQUENCY TIME-1 DAY, THERAPY START DATE: ASKU
  8. TRAMADOL HYDROCHLORIDE [Concomitant]
     Active Substance: TRAMADOL HYDROCHLORIDE
     Indication: Product used for unknown indication
     Dosage: THERAPY START DATE: ASKU, FREQUENCY TIME- 1 AS REQUIRED

REACTIONS (1)
  - Interstitial lung disease [Fatal]

NARRATIVE: CASE EVENT DATE: 20220704
